FAERS Safety Report 9981314 (Version 2)
Quarter: 2014Q1

REPORT INFORMATION
  Report Type: Spontaneous
  Country: US (occurrence: US)
  Receive Date: 20140307
  Receipt Date: 20140312
  Transmission Date: 20141002
  Serious: No
  Sender: FDA-Public Use
  Company Number: US-PFIZER INC-2014066110

PATIENT
  Age: 15 Year
  Sex: Female
  Weight: 63 kg

DRUGS (3)
  1. DEPO-PROVERA [Suspect]
     Indication: MENOMETRORRHAGIA
     Dosage: UNK
     Dates: start: 201308
  2. DEPO-PROVERA [Suspect]
     Dosage: UNK
     Dates: start: 20140121
  3. ALLEGRA [Concomitant]
     Indication: HYPERSENSITIVITY
     Dosage: UNK

REACTIONS (6)
  - Inappropriate schedule of drug administration [Unknown]
  - Drug ineffective for unapproved indication [Unknown]
  - Muscle spasms [Unknown]
  - Headache [Unknown]
  - Back pain [Unknown]
  - Pain [Unknown]
